FAERS Safety Report 6843582 (Version 2)
Quarter: 2017Q3

REPORT INFORMATION
  Report Type: Report from Study
  Country: US (occurrence: US)
  Receive Date: 20081211
  Receipt Date: 20170824
  Transmission Date: 20171128
  Serious: No
  Sender: FDA-Public Use
  Company Number: US-AMGEN-KDL279519

PATIENT
  Age: 50 Year

DRUGS (2)
  1. ENBREL [Suspect]
     Active Substance: ETANERCEPT
     Dosage: 50 MG, EVERY TWO TO THREE WEEKS
     Route: 058
  2. ENBREL [Suspect]
     Active Substance: ETANERCEPT
     Indication: PSORIASIS
     Dosage: 50 MG, UNK
     Route: 058

REACTIONS (3)
  - Intentional product misuse [Unknown]
  - Unevaluable event [Unknown]
  - Psoriasis [Unknown]

NARRATIVE: CASE EVENT DATE: 20080401
